FAERS Safety Report 23087094 (Version 1)
Quarter: 2023Q4

REPORT INFORMATION
  Report Type: Spontaneous
  Country: GB (occurrence: GB)
  Receive Date: 20231020
  Receipt Date: 20231020
  Transmission Date: 20240110
  Serious: Yes (Other)
  Sender: FDA-Public Use
  Company Number: GB-MHRA-TPP8393958C8873205YC1696956575380

PATIENT
  Age: 81 Year
  Sex: Female
  Weight: 63 kg

DRUGS (9)
  1. AMOXICILLIN [Suspect]
     Active Substance: AMOXICILLIN
     Indication: Product used for unknown indication
     Dosage: 3 TIMES
     Route: 065
     Dates: start: 20231002
  2. Balneum [Concomitant]
     Indication: Product used for unknown indication
     Dosage: APPLY, TWO TIMES A DAY
     Route: 065
     Dates: start: 20230210
  3. CLARITHROMYCIN [Concomitant]
     Active Substance: CLARITHROMYCIN
     Indication: Product used for unknown indication
     Dosage: 10 MILLILITER, TWO TIMES A DAY
     Route: 065
     Dates: start: 20231010
  4. DOXYCYCLINE [Concomitant]
     Active Substance: DOXYCYCLINE
     Indication: Product used for unknown indication
     Dosage: INITIALLY 200MG DAILY FOR ONE DOSE, THEN 100MG
     Route: 065
     Dates: start: 20231010
  5. FLUOROURACIL [Concomitant]
     Active Substance: FLUOROURACIL
     Indication: Product used for unknown indication
     Dosage: APPLY TO THE AFFECTED AREA EVERY OTHER DAY/ ONCE
     Route: 065
     Dates: start: 20230913
  6. FLUOXETINE [Concomitant]
     Active Substance: FLUOXETINE HYDROCHLORIDE
     Indication: Product used for unknown indication
     Dosage: 40MG (10ML) DAILY OR AS DIRECTED
     Route: 065
     Dates: start: 20230118
  7. ENOXAPARIN SODIUM [Concomitant]
     Active Substance: ENOXAPARIN SODIUM
     Indication: Product used for unknown indication
     Dosage: 1 DOSAGE FORM, TWO TIMES A DAY
     Route: 058
     Dates: start: 20230118, end: 20230811
  8. MEGESTROL ACETATE [Concomitant]
     Active Substance: MEGESTROL ACETATE
     Indication: Product used for unknown indication
     Dosage: 1 DOSAGE FORM, ONCE A DAY (AT NIGHT)
     Route: 065
     Dates: start: 20230118
  9. RAMIPRIL [Concomitant]
     Active Substance: RAMIPRIL
     Indication: Product used for unknown indication
     Dosage: 1 DOSAGE FORM, ONCE A DAY
     Route: 065
     Dates: start: 20230118

REACTIONS (1)
  - Lip swelling [Recovered/Resolved]
